FAERS Safety Report 6878948-8 (Version None)
Quarter: 2010Q3

REPORT INFORMATION
  Report Type: 
  Country: None (occurrence: None)
  Receive Date: 20100728
  Receipt Date: 20100625
  Transmission Date: 20110219
  Serious: No
  Sender: FDA-Public Use
  Company Number: US-BAYER-201017536BCC

PATIENT
  Sex: Female
  Weight: 73 kg

DRUGS (1)
  1. ALEVE [Suspect]
     Indication: PROCEDURAL PAIN
     Dosage: BOTTLE COUNT 200CT
     Route: 048
     Dates: start: 20100625

REACTIONS (1)
  - PROCEDURAL PAIN [None]
